FAERS Safety Report 20573152 (Version 4)
Quarter: 2023Q4

REPORT INFORMATION
  Report Type: Spontaneous
  Country: US (occurrence: US)
  Receive Date: 20220309
  Receipt Date: 20231229
  Transmission Date: 20240109
  Serious: Yes (Disabling, Other)
  Sender: FDA-Public Use
  Company Number: US-ORGANON-O2203USA000798

PATIENT
  Sex: Male

DRUGS (1)
  1. SINGULAIR [Suspect]
     Active Substance: MONTELUKAST SODIUM
     Dosage: UNK
     Route: 048
     Dates: start: 200310, end: 2006

REACTIONS (10)
  - Neuropsychological symptoms [Not Recovered/Not Resolved]
  - Tic [Recovering/Resolving]
  - Depression [Not Recovered/Not Resolved]
  - Autism spectrum disorder [Unknown]
  - Obsessive-compulsive disorder [Recovering/Resolving]
  - Attention deficit hyperactivity disorder [Recovering/Resolving]
  - Anxiety [Recovering/Resolving]
  - Aggression [Unknown]
  - Behaviour disorder [Unknown]
  - Withdrawal syndrome [Unknown]

NARRATIVE: CASE EVENT DATE: 20030101
